FAERS Safety Report 9515788 (Version 1)
Quarter: 2013Q3

REPORT INFORMATION
  Report Type: Spontaneous
  Country: US (occurrence: US)
  Receive Date: 20130911
  Receipt Date: 20130911
  Transmission Date: 20140515
  Serious: No
  Sender: FDA-Public Use
  Company Number: US-BAYER-2013-109217

PATIENT
  Age: 3 Year
  Sex: Female
  Weight: 12 kg

DRUGS (1)
  1. ALEVE TABLET [Suspect]
     Dosage: 1 DF, ONCE
     Route: 048
     Dates: start: 20130904, end: 20130904

REACTIONS (2)
  - Abdominal pain upper [Recovered/Resolved]
  - Accidental exposure to product by child [None]
